FAERS Safety Report 24273678 (Version 1)
Quarter: 2024Q3

REPORT INFORMATION
  Report Type: Spontaneous
  Country: US (occurrence: US)
  Receive Date: 20240902
  Receipt Date: 20240902
  Transmission Date: 20241016
  Serious: No
  Sender: ASTELLAS
  Company Number: US-ASTELLAS-2024US009644

PATIENT
  Age: 80 Year
  Sex: Male
  Weight: 90.7 kg

DRUGS (5)
  1. XTANDI [Suspect]
     Active Substance: ENZALUTAMIDE
     Indication: Product used for unknown indication
     Dosage: UNK UNK, UNKNOWN FREQ.
     Route: 065
  2. TALZENNA [Suspect]
     Active Substance: TALAZOPARIB TOSYLATE
     Indication: Product used for unknown indication
     Dosage: 0.5 MG, ONCE DAILY (IN THE MORNING)
     Route: 048
     Dates: start: 2023
  3. DIETARY SUPPLEMENT\HERBALS\INDIAN FRANKINCENSE [Concomitant]
     Active Substance: DIETARY SUPPLEMENT\HERBALS\INDIAN FRANKINCENSE
     Indication: Arthritis
     Dosage: UNK UNK, UNKNOWN FREQ.
     Route: 065
  4. Bromaline [Concomitant]
     Indication: Arthritis
     Dosage: UNK UNK, UNKNOWN FREQ.
     Route: 065
  5. ZYTIGA [Concomitant]
     Active Substance: ABIRATERONE ACETATE
     Indication: Product used for unknown indication
     Dosage: UNK UNK, UNKNOWN FREQ.
     Route: 065

REACTIONS (12)
  - Weight decreased [Recovering/Resolving]
  - Sensory disturbance [Recovered/Resolved]
  - Visual field defect [Recovered/Resolved]
  - Restless legs syndrome [Recovering/Resolving]
  - Condition aggravated [Recovering/Resolving]
  - Arthritis [Recovered/Resolved]
  - Alopecia [Unknown]
  - Pollakiuria [Unknown]
  - Micturition urgency [Unknown]
  - Gynaecomastia [Unknown]
  - Blood glucose increased [Unknown]
  - Appetite disorder [Unknown]

NARRATIVE: CASE EVENT DATE: 20230101
